FAERS Safety Report 8093670-0 (Version None)
Quarter: 2012Q1

REPORT INFORMATION
  Report Type: 
  Country: None (occurrence: None)
  Receive Date: 20120129
  Receipt Date: 20110929
  Transmission Date: 20120608
  Serious: No
  Sender: FDA-Public Use
  Company Number: US-ABBOTT-11P-163-0859943-00

PATIENT
  Age: 39 Year
  Sex: Male

DRUGS (11)
  1. HUMIRA [Suspect]
     Indication: RHEUMATOID ARTHRITIS
  2. FOLIC ACID [Concomitant]
     Indication: PRODUCT USED FOR UNKNOWN INDICATION
  3. PREDNISONE TAB [Concomitant]
     Indication: RHEUMATOID ARTHRITIS
     Dosage: DAILY
  4. POTASSIUM CHLORIDE [Concomitant]
     Indication: PRODUCT USED FOR UNKNOWN INDICATION
     Dosage: DAILY WITH WATER PILL
  5. HYRDOXYCHLOROQUINE [Concomitant]
     Indication: RHEUMATOID ARTHRITIS
  6. CLONAZEPAM [Concomitant]
     Indication: ANXIETY
  7. ENALAPRIL [Concomitant]
     Indication: BLOOD PRESSURE
     Dosage: DAILY
  8. OXYCODONE HCL [Concomitant]
     Indication: ARTHRALGIA
     Dosage: 5/325 1-2 TABLETS ONCE EVERY 6-8 HOURS
  9. PEROXETINE [Concomitant]
     Indication: PRODUCT USED FOR UNKNOWN INDICATION
     Dosage: DAILY
  10. METHOTREXATE SODIUM [Concomitant]
     Indication: RHEUMATOID ARTHRITIS
  11. FUROSEMIDE [Concomitant]
     Indication: JOINT SWELLING
     Dosage: DAILY

REACTIONS (2)
  - INJECTION SITE PAIN [None]
  - INJECTION SITE HAEMATOMA [None]
